FAERS Safety Report 9380352 (Version 1)
Quarter: 2013Q3

REPORT INFORMATION
  Report Type: Spontaneous
  Country: IN (occurrence: IN)
  Receive Date: 20130702
  Receipt Date: 20130702
  Transmission Date: 20140515
  Serious: Yes (Death, Hospitalization)
  Sender: FDA-Public Use
  Company Number: IN-GLAXOSMITHKLINE-B0904437A

PATIENT
  Age: 52 Year
  Sex: Female

DRUGS (1)
  1. VOTRIENT [Suspect]
     Indication: RENAL CELL CARCINOMA
     Dosage: 800MG PER DAY

REACTIONS (4)
  - Dyspnoea [Fatal]
  - Aphagia [Unknown]
  - Metastases to liver [Fatal]
  - Metastases to stomach [Fatal]
